FAERS Safety Report 23925909 (Version 2)
Quarter: 2024Q2

REPORT INFORMATION
  Report Type: Spontaneous
  Country: JP (occurrence: JP)
  Receive Date: 20240531
  Receipt Date: 20240615
  Transmission Date: 20240715
  Serious: Yes (Other)
  Sender: FDA-Public Use
  Company Number: JP-OTSUKA-2024_014368

PATIENT
  Age: 45 Year
  Sex: Female

DRUGS (13)
  1. AJOVY [Suspect]
     Active Substance: FREMANEZUMAB-VFRM
     Indication: Migraine
     Dosage: UNK, SECOND DOSE
     Route: 058
     Dates: start: 2024, end: 2024
  2. AJOVY [Suspect]
     Active Substance: FREMANEZUMAB-VFRM
     Dosage: (FIFTH DOSE)
     Route: 058
     Dates: start: 20240418
  3. AJOVY [Suspect]
     Active Substance: FREMANEZUMAB-VFRM
     Dosage: UNK, FOURTH DOSE
     Route: 058
     Dates: start: 202403, end: 202403
  4. AJOVY [Suspect]
     Active Substance: FREMANEZUMAB-VFRM
     Dosage: UNK, FIRST DOSE
     Route: 058
  5. AJOVY [Suspect]
     Active Substance: FREMANEZUMAB-VFRM
     Dosage: UNK, THIRD DOSE
     Route: 058
     Dates: start: 202402, end: 202402
  6. AJOVY [Suspect]
     Active Substance: FREMANEZUMAB-VFRM
     Dosage: UNK, SIXTH DOSE
     Route: 058
     Dates: start: 20240516, end: 20240516
  7. INFLUENZA VIRUS VACCINE [Concomitant]
     Active Substance: INFLUENZA VIRUS VACCINE
     Indication: Product used for unknown indication
     Dosage: UNK
     Route: 065
  8. INFLUENZA VIRUS VACCINE [Concomitant]
     Active Substance: INFLUENZA VIRUS VACCINE
     Indication: Product used for unknown indication
     Route: 065
  9. LOMERIZINE HYDROCHLORIDE [Concomitant]
     Active Substance: LOMERIZINE HYDROCHLORIDE
     Indication: Product used for unknown indication
     Dosage: 2 TABLETS DAILY IN TWO DIVIDED DOSES, AFTER BREAKFAST/BEFORE BEDTIME
     Route: 048
  10. LOMERIZINE HYDROCHLORIDE [Concomitant]
     Active Substance: LOMERIZINE HYDROCHLORIDE
     Indication: Product used for unknown indication
     Dosage: 2 TABLETS DAILY IN TWO DIVIDED DOSES, AFTER BREAKFAST/BEFORE BEDTIME
     Route: 048
  11. AMITRIPTYLINE HYDROCHLORIDE [Concomitant]
     Active Substance: AMITRIPTYLINE HYDROCHLORIDE
     Indication: Product used for unknown indication
     Dosage: 2 TABLETS DAILY IN ONE DOSE, BEFORE BEDTIME
     Route: 048
  12. AMERGE [Concomitant]
     Active Substance: NARATRIPTAN HYDROCHLORIDE
     Indication: Product used for unknown indication
     Dosage: 1 TABLET ON AN AS-NEEDED BASIS, PRESCRIBED FOR 10 TIMES
     Route: 048
  13. CELECOXIB [Concomitant]
     Active Substance: CELECOXIB
     Indication: Headache
     Dosage: 1 TABLET ON AN AS-NEEDED BASIS AT THE TIME OF HEADACHE, UP TO 2 TIMES A DAY, PRESCRIBED FOR 10 TIMES
     Route: 048

REACTIONS (6)
  - Butterfly rash [Not Recovered/Not Resolved]
  - Erythema [Not Recovered/Not Resolved]
  - Cushingoid [Not Recovered/Not Resolved]
  - Injection site pruritus [Recovering/Resolving]
  - Feeling hot [Recovering/Resolving]
  - Swelling [Recovering/Resolving]

NARRATIVE: CASE EVENT DATE: 20240418
